FAERS Safety Report 21484058 (Version 1)
Quarter: 2022Q4

REPORT INFORMATION
  Report Type: Report from Study
  Country: US (occurrence: US)
  Receive Date: 20221020
  Receipt Date: 20221020
  Transmission Date: 20230113
  Serious: No
  Sender: FDA-Public Use
  Company Number: US-ABBVIE-4162812

PATIENT
  Sex: Female

DRUGS (25)
  1. VENCLEXTA [Suspect]
     Active Substance: VENETOCLAX
     Indication: Acute myeloid leukaemia
     Route: 048
     Dates: start: 20220928
  2. BIOTIN\CALCIUM PANTOTHENATE\CHOLINE BITARTRATE\CYANOCOBALAMIN\FOLIC AC [Concomitant]
     Active Substance: BIOTIN\CALCIUM PANTOTHENATE\CHOLINE BITARTRATE\CYANOCOBALAMIN\FOLIC ACID\INOSITOL\NIACINAMIDE\PYRIDO
     Indication: Product used for unknown indication
     Dosage: EXTENDED
     Route: 048
  3. VITAMIN C [Concomitant]
     Active Substance: ASCORBIC ACID
     Indication: Product used for unknown indication
     Dosage: STRENGTH 500
     Route: 048
  4. ACETAMINOPHEN [Concomitant]
     Active Substance: ACETAMINOPHEN
     Indication: Product used for unknown indication
  5. HERBALS [Concomitant]
     Active Substance: HERBALS
     Indication: Product used for unknown indication
     Dosage: STRENGTH 500 MILLIGRAM
     Route: 048
  6. PAPAYA [Concomitant]
     Active Substance: PAPAYA
     Indication: Product used for unknown indication
     Route: 048
  7. LEVOTHYROXINE SODIUM [Concomitant]
     Active Substance: LEVOTHYROXINE SODIUM
     Indication: Product used for unknown indication
     Dosage: STRENGTH 10
     Route: 048
  8. ASPIRIN [Concomitant]
     Active Substance: ASPIRIN
     Indication: Product used for unknown indication
     Dosage: STRENGTH 81?DELAYED RELEASE
     Route: 048
  9. SIMVASTATIN [Concomitant]
     Active Substance: SIMVASTATIN
     Indication: Product used for unknown indication
     Dosage: STRENGTH 10 MILLIGRAM
     Route: 048
  10. Ferrous Sulfate Iron [Concomitant]
     Indication: Product used for unknown indication
     Dosage: STRENGTH 20
     Route: 048
  11. HYDROXYCHLOROQUINE SULFATE [Concomitant]
     Active Substance: HYDROXYCHLOROQUINE SULFATE
     Indication: Product used for unknown indication
     Route: 048
  12. DANDELION ROOT [Concomitant]
     Indication: Product used for unknown indication
  13. CALCIUM CARBONATE\VITAMIN D [Concomitant]
     Active Substance: CALCIUM CARBONATE\VITAMIN D
     Indication: Product used for unknown indication
     Route: 048
  14. ONDANSETRON HCL [Concomitant]
     Active Substance: ONDANSETRON HYDROCHLORIDE
     Indication: Product used for unknown indication
     Dosage: STRENGTH 4 MILLIGRAM
     Route: 048
  15. AMLODIPINE BESYLATE [Concomitant]
     Active Substance: AMLODIPINE BESYLATE
     Indication: Product used for unknown indication
     Dosage: STRENGTH 10
     Route: 048
  16. FLUOXETINE HYDROCHLORIDE [Concomitant]
     Active Substance: FLUOXETINE HYDROCHLORIDE
     Indication: Product used for unknown indication
     Dosage: STRENGTH 10 MILLIGRAM
     Route: 048
  17. PANTOPRAZOLE SODIUM [Concomitant]
     Active Substance: PANTOPRAZOLE SODIUM
     Indication: Product used for unknown indication
     Route: 048
  18. AZACITIDINE [Concomitant]
     Active Substance: AZACITIDINE
     Indication: Product used for unknown indication
     Dosage: INJECTION SUSPENSION
  19. HERBALS\TURMERIC [Concomitant]
     Active Substance: HERBALS\TURMERIC
     Indication: Product used for unknown indication
     Dosage: STRENGTH 500 MILLIGRAM
     Route: 048
  20. LISINOPRIL [Concomitant]
     Active Substance: LISINOPRIL
     Indication: Product used for unknown indication
     Dosage: STRENGTH 10 MILLIGRAM
     Route: 048
  21. MAGNESIUM OXIDE [Concomitant]
     Active Substance: MAGNESIUM OXIDE
     Indication: Product used for unknown indication
     Dosage: STRENGTH 420 MILLIGRAM
     Route: 048
  22. ECHINACEA [Concomitant]
     Active Substance: ECHINACEA, UNSPECIFIED
     Indication: Product used for unknown indication
     Dosage: STRENGTH 500 MILLIGRAM
     Route: 048
  23. CETIRIZINE HCL [Concomitant]
     Active Substance: CETIRIZINE HYDROCHLORIDE
     Indication: Product used for unknown indication
     Dosage: STRENGTH 10 MILLIGRAM
     Route: 048
  24. KRILL OIL [Concomitant]
     Active Substance: DIETARY SUPPLEMENT\KRILL OIL
     Indication: Product used for unknown indication
     Dosage: STRENGTH 300 MILLIGRAM
     Route: 048
  25. WHEAT [Concomitant]
     Active Substance: WHEAT
     Indication: Product used for unknown indication

REACTIONS (1)
  - Oral pain [Not Recovered/Not Resolved]
